FAERS Safety Report 10892743 (Version 1)
Quarter: 2015Q1

REPORT INFORMATION
  Report Type: Spontaneous
  Country: CH (occurrence: CH)
  Receive Date: 20150306
  Receipt Date: 20150306
  Transmission Date: 20150721
  Serious: Yes (Hospitalization, Other)
  Sender: FDA-Public Use
  Company Number: CH-ABBVIE-04P-151-0271612-00

PATIENT
  Sex: Male

DRUGS (7)
  1. DEPAKENE [Suspect]
     Active Substance: VALPROIC ACID
     Indication: EPILEPSY
     Route: 048
     Dates: end: 20030413
  2. KEPPRA [Suspect]
     Active Substance: LEVETIRACETAM
     Indication: EPILEPSY
     Route: 048
     Dates: start: 20040413
  3. TAVANIC [Concomitant]
     Active Substance: LEVOFLOXACIN
     Indication: RESPIRATORY TRACT INFECTION
     Route: 048
     Dates: start: 20040419
  4. DIAMOX SEQUELS [Concomitant]
     Active Substance: ACETAZOLAMIDE
     Indication: RESPIRATORY ACIDOSIS
     Route: 048
     Dates: start: 20040422
  5. KLACID [Suspect]
     Active Substance: CLARITHROMYCIN
     Indication: PRODUCT USED FOR UNKNOWN INDICATION
     Route: 065
  6. DAFALGAN [Suspect]
     Active Substance: ACETAMINOPHEN
     Indication: PYREXIA
     Route: 048
     Dates: start: 20040413, end: 20040422
  7. MERONEM [Suspect]
     Active Substance: MEROPENEM
     Indication: RESPIRATORY TRACT INFECTION
     Route: 042
     Dates: start: 20040413, end: 20040419

REACTIONS (9)
  - Respiratory failure [Recovered/Resolved]
  - Respiratory tract infection [Unknown]
  - Bacterial test positive [Unknown]
  - Agranulocytosis [Recovered/Resolved]
  - Sepsis [Unknown]
  - Bone marrow failure [Recovered/Resolved]
  - Pancytopenia [Recovered/Resolved]
  - Respiratory acidosis [Unknown]
  - Adverse drug reaction [Unknown]

NARRATIVE: CASE EVENT DATE: 20040413
